FAERS Safety Report 8271510-4 (Version None)
Quarter: 2012Q1

REPORT INFORMATION
  Report Type: 
  Country: None (occurrence: None)
  Receive Date: 20120327
  Receipt Date: 20100401
  Transmission Date: 20120608
  Serious: Yes (Death)
  Sender: FDA-Public Use
  Company Number: PHEH2010US03301

PATIENT
  Age: 62 Year
  Sex: Male

DRUGS (1)
  1. GLEEVEC [Suspect]
     Indication: GASTROINTESTINAL STROMAL TUMOUR
     Dosage: 400 MG, QD, ORAL
     Route: 048
     Dates: start: 20051004, end: 20080314

REACTIONS (3)
  - GASTROINTESTINAL STROMAL TUMOUR [None]
  - NEOPLASM PROGRESSION [None]
  - NEOPLASM MALIGNANT [None]
